FAERS Safety Report 6759689-4 (Version None)
Quarter: 2010Q2

REPORT INFORMATION
  Report Type: 
  Country: None (occurrence: None)
  Receive Date: 20100604
  Receipt Date: 20100525
  Transmission Date: 20101027
  Serious: Yes (Other)
  Sender: FDA-Public Use
  Company Number: CIP10000499

PATIENT
  Age: 65 Year
  Sex: Female

DRUGS (8)
  1. ACTONEL WITH CALCIUM (COPACKAGED) [Suspect]
     Dosage: 1 TABLET CYCLIC DAILY, ORAL
     Route: 048
     Dates: start: 20090227, end: 20100228
  2. ATACAND [Concomitant]
  3. LIPITOR [Concomitant]
  4. ASPIRIN [Concomitant]
  5. FOLIC ACID [Concomitant]
  6. HERBAL PREPARATION [Concomitant]
  7. VITAMIN D [Concomitant]
  8. CALCIUM (CALCIUM) [Concomitant]

REACTIONS (2)
  - CATARACT [None]
  - EYE INFLAMMATION [None]
